FAERS Safety Report 4872559-1 (Version None)
Quarter: 2006Q1

REPORT INFORMATION
  Report Type: 
  Country: None (occurrence: None)
  Receive Date: 20060105
  Receipt Date: 20051014
  Transmission Date: 20060701
  Serious: Yes (Life-Threatening, Hospitalization)
  Sender: FDA-Public Use
  Company Number: FI-BOEHRINGER INGELHEIM PHARMACEUTICALS, INC.-2005-SW-00468SF

PATIENT
  Sex: Female

DRUGS (3)
  1. VIRAMUNE TAB 200 MG [Suspect]
     Indication: HIV INFECTION
     Dates: start: 20010510, end: 20050920
  2. VIDEX EC [Suspect]
     Indication: HIV INFECTION
     Dates: start: 20010510, end: 20050920
  3. ZERIT [Suspect]
     Indication: HIV INFECTION
     Dates: start: 20050620, end: 20050920

REACTIONS (10)
  - ABDOMINAL TENDERNESS [None]
  - ALANINE AMINOTRANSFERASE INCREASED [None]
  - ANOREXIA [None]
  - ASPARTATE AMINOTRANSFERASE INCREASED [None]
  - BLOOD PHOSPHORUS DECREASED [None]
  - FATIGUE [None]
  - GAMMA-GLUTAMYLTRANSFERASE INCREASED [None]
  - LACTIC ACIDOSIS [None]
  - MALAISE [None]
  - VOMITING [None]
